FAERS Safety Report 9116858 (Version 3)
Quarter: 2013Q2

REPORT INFORMATION
  Report Type: Spontaneous
  Country: DE (occurrence: DE)
  Receive Date: 20130225
  Receipt Date: 20130409
  Transmission Date: 20140414
  Serious: Yes (Other)
  Sender: FDA-Public Use
  Company Number: PHHY2013DE017836

PATIENT
  Sex: Female

DRUGS (2)
  1. VOLTAREN [Suspect]
     Dosage: 25 MG
     Route: 048
  2. VOLTAREN [Suspect]
     Dosage: 75 MG, PRN (ON DEMAND)
     Route: 048

REACTIONS (1)
  - Glaucoma [Not Recovered/Not Resolved]
